FAERS Safety Report 4299123-X (Version None)
Quarter: 2004Q1

REPORT INFORMATION
  Report Type: 
  Country: None (occurrence: None)
  Receive Date: 20040217
  Receipt Date: 20040209
  Transmission Date: 20041129
  Serious: Yes (Hospitalization)
  Sender: FDA-Public Use
  Company Number: TAP2004Q00075

PATIENT
  Age: 31 Year
  Sex: Female
  Weight: 58.9676 kg

DRUGS (4)
  1. LUPRON DEPOT-3 [Suspect]
     Indication: ENDOMETRIOSIS
     Dosage: 11.25 MG, ONCE, INTRAMUSCULAR
     Route: 030
     Dates: start: 20030826, end: 20030826
  2. ORTHO-CEPT (MARVELON) [Concomitant]
  3. MULTIVITAMINS AND IRON (MULTIVITAMINS AND IRON) [Concomitant]
  4. NORTRIPTYLINE HCL [Concomitant]

REACTIONS (7)
  - BACK PAIN [None]
  - BLOOD OESTROGEN INCREASED [None]
  - BREAST TENDERNESS [None]
  - DRUG INEFFECTIVE [None]
  - DYSMENORRHOEA [None]
  - MENOMETRORRHAGIA [None]
  - PELVIC PAIN [None]
